FAERS Safety Report 5232083-3 (Version None)
Quarter: 2007Q1

REPORT INFORMATION
  Report Type: 
  Country: None (occurrence: None)
  Receive Date: 20061201
  Receipt Date: 20060831
  Transmission Date: 20070707
  Serious: No
  Sender: FDA-Public Use
  Company Number: US200609000162

PATIENT
  Age: 34 Year
  Sex: Male

DRUGS (9)
  1. CYMBALTA [Suspect]
     Indication: DEPRESSION
     Dosage: SEE IMAGE
     Route: 048
     Dates: start: 20060801, end: 20060801
  2. CYMBALTA [Suspect]
     Indication: DEPRESSION
     Dosage: SEE IMAGE
     Route: 048
     Dates: start: 20060801, end: 20060801
  3. CYMBALTA [Suspect]
     Indication: DEPRESSION
     Dosage: SEE IMAGE
     Route: 048
     Dates: start: 20060801, end: 20060830
  4. PROZAC [Concomitant]
  5. XANAX /USA/ (ALPRAZOLAM) [Concomitant]
  6. LIPITOR [Concomitant]
  7. LOTREL [Concomitant]
  8. ASPIRIN [Concomitant]
  9. PROTONIX [Concomitant]

REACTIONS (5)
  - BURNING SENSATION [None]
  - FEELING ABNORMAL [None]
  - FEELING DRUNK [None]
  - IRRITABILITY [None]
  - LETHARGY [None]
